FAERS Safety Report 5087974-3 (Version None)
Quarter: 2006Q3

REPORT INFORMATION
  Report Type: 
  Country: None (occurrence: None)
  Receive Date: 20060821
  Receipt Date: 20060804
  Transmission Date: 20061208
  Serious: Yes (Other)
  Sender: FDA-Public Use
  Company Number: 29703

PATIENT
  Sex: Female

DRUGS (2)
  1. ALDARA [Suspect]
     Indication: ACTINIC KERATOSIS
     Dosage: SEE IMAGE
     Route: 061
     Dates: start: 20060701, end: 20060701
  2. ALDARA [Suspect]
     Indication: ACTINIC KERATOSIS
     Dosage: SEE IMAGE
     Route: 061
     Dates: start: 20060701, end: 20060801

REACTIONS (7)
  - CHEST PAIN [None]
  - ELECTROCARDIOGRAM ABNORMAL [None]
  - INAPPROPRIATE SCHEDULE OF DRUG ADMINISTRATION [None]
  - INFLUENZA LIKE ILLNESS [None]
  - LYMPHADENOPATHY [None]
  - MUSCLE SPASMS [None]
  - TREATMENT NONCOMPLIANCE [None]
